FAERS Safety Report 21931462 (Version 1)
Quarter: 2023Q1

REPORT INFORMATION
  Report Type: Spontaneous
  Country: US (occurrence: None)
  Receive Date: 20230130
  Receipt Date: 20230130
  Transmission Date: 20230418
  Serious: No
  Sender: FDA-Public Use
  Company Number: None

PATIENT
  Age: 40 Year
  Sex: Female
  Weight: 103.5 kg

DRUGS (8)
  1. AIMOVIG [Suspect]
     Active Substance: ERENUMAB-AOOE
     Indication: Migraine
     Dosage: OTHER QUANTITY : 1 INJECTION(S);?FREQUENCY : DAILY;?
     Route: 058
  2. EFFEXOR [Concomitant]
     Active Substance: VENLAFAXINE HYDROCHLORIDE
  3. BUPROPION [Concomitant]
     Active Substance: BUPROPION
  4. Eliquis 2.5mg bid [Concomitant]
  5. ATENOLOL [Concomitant]
     Active Substance: ATENOLOL
  6. Omepazole 40mg [Concomitant]
  7. Melatonin 10mg [Concomitant]
  8. Tylenol 650mg [Concomitant]

REACTIONS (2)
  - Phlebitis [None]
  - Therapy cessation [None]

NARRATIVE: CASE EVENT DATE: 20220409
